FAERS Safety Report 9100656 (Version 1)
Quarter: 2013Q1

REPORT INFORMATION
  Report Type: Report from Study
  Country: JP (occurrence: JP)
  Receive Date: 20130215
  Receipt Date: 20130215
  Transmission Date: 20140127
  Serious: Yes (Other)
  Sender: FDA-Public Use
  Company Number: JP-EISAI INC-E7389-02945-CLI-JP

PATIENT
  Age: 63 None
  Sex: Female
  Weight: 59 kg

DRUGS (27)
  1. HALAVEN [Suspect]
     Indication: BREAST CANCER RECURRENT
     Route: 041
     Dates: start: 20110927, end: 20120529
  2. HALAVEN [Suspect]
     Indication: METASTASES TO BONE
  3. VOLTAREN [Suspect]
     Indication: PROPHYLAXIS
     Route: 054
  4. ARIMIDEX [Concomitant]
     Indication: BREAST CANCER RECURRENT
     Route: 065
  5. ARIMIDEX [Concomitant]
     Indication: METASTASES TO BONE
  6. CINAL [Concomitant]
     Indication: PROPHYLAXIS
     Route: 048
  7. MUCOSTA [Concomitant]
     Indication: PROPHYLAXIS
     Route: 048
  8. LOXONIN [Concomitant]
     Indication: PROPHYLAXIS
     Route: 048
  9. ZOFRAN [Concomitant]
     Indication: PROPHYLAXIS
     Route: 048
  10. MOHRUS TAPE [Concomitant]
     Indication: PROPHYLAXIS
     Route: 065
  11. RINDERON-VG [Concomitant]
     Indication: PROPHYLAXIS
     Route: 065
  12. SOLDOL [Concomitant]
     Indication: PROPHYLAXIS
     Route: 048
  13. FERROMIA [Concomitant]
     Indication: INCORRECT ROUTE OF DRUG ADMINISTRATION
     Route: 048
  14. LECICARBON [Concomitant]
     Indication: CONSTIPATION
     Route: 065
  15. OXINORM [Concomitant]
     Indication: PAIN
     Route: 048
  16. ZEPOLAS [Concomitant]
     Indication: PAIN
     Route: 065
  17. PROTECADIN [Concomitant]
     Indication: ABDOMINAL PAIN UPPER
     Route: 048
  18. SELBEX [Concomitant]
     Indication: ABDOMINAL PAIN UPPER
     Route: 048
  19. NEO-MINOPHAGEN C [Concomitant]
     Indication: PROPHYLAXIS
     Route: 065
  20. ELIETEN [Concomitant]
     Indication: PROPHYLAXIS
     Route: 065
  21. HYSRON [Concomitant]
     Indication: BREAST CANCER RECURRENT
     Route: 065
     Dates: start: 20120515
  22. HYSRON [Concomitant]
     Indication: METASTASES TO BONE
  23. OXYCONTIN [Concomitant]
     Indication: PAIN
     Route: 048
  24. OXYCONTIN [Concomitant]
     Indication: PROPHYLAXIS
  25. DUROTEP [Concomitant]
     Indication: PROPHYLAXIS
     Route: 065
  26. MONILAC [Concomitant]
     Indication: PROPHYLAXIS
     Route: 048
  27. RACOL-NF [Concomitant]
     Indication: PROPHYLAXIS
     Route: 048

REACTIONS (5)
  - Lung disorder [Unknown]
  - Leukopenia [Recovered/Resolved]
  - Leukopenia [Recovering/Resolving]
  - Neutropenia [Recovering/Resolving]
  - Dyspnoea [Unknown]
